FAERS Safety Report 5179577-7 (Version None)
Quarter: 2006Q4

REPORT INFORMATION
  Report Type: 
  Country: None (occurrence: None)
  Receive Date: 20061219
  Receipt Date: 20061213
  Transmission Date: 20070319
  Serious: Yes (Other)
  Sender: FDA-Public Use
  Company Number: HK-ROXANE LABORATORIES, INC-2006-DE-06668GD

PATIENT
  Sex: Female
  Weight: 56 kg

DRUGS (5)
  1. MORPHINE [Suspect]
     Indication: SPINAL ANAESTHESIA
     Route: 037
  2. FENTANYL [Suspect]
     Indication: SPINAL ANAESTHESIA
     Route: 037
  3. BUPIVACAINE [Suspect]
     Indication: SPINAL ANAESTHESIA
     Route: 037
  4. GELOFUSINE [Concomitant]
  5. HARTMANN'S SOLUTION [Concomitant]

REACTIONS (6)
  - ATELECTASIS [None]
  - LUNG DISORDER [None]
  - PLEURAL EFFUSION [None]
  - PULMONARY CONGESTION [None]
  - PULMONARY EMBOLISM [None]
  - RESPIRATORY DEPRESSION [None]
